FAERS Safety Report 24943312 (Version 1)
Quarter: 2025Q1

REPORT INFORMATION
  Report Type: Spontaneous
  Country: US (occurrence: US)
  Receive Date: 20250207
  Receipt Date: 20250207
  Transmission Date: 20250408
  Serious: Yes (Other)
  Sender: RADIUS PHARM
  Company Number: US-RADIUS HEALTH INC.-2024US009150

PATIENT
  Age: 58 Year
  Sex: Female

DRUGS (2)
  1. TYMLOS [Suspect]
     Active Substance: ABALOPARATIDE
     Indication: Senile osteoporosis
     Route: 058
     Dates: start: 202409
  2. TYMLOS [Suspect]
     Active Substance: ABALOPARATIDE
     Dates: start: 202411

REACTIONS (8)
  - Hypopnoea [Unknown]
  - Dyspnoea [Unknown]
  - Hemiparesis [Unknown]
  - Intentional dose omission [Recovered/Resolved]
  - Vomiting [Unknown]
  - Nausea [Unknown]
  - Product storage error [Recovered/Resolved]
  - Product quality issue [Unknown]

NARRATIVE: CASE EVENT DATE: 20240901
